FAERS Safety Report 25219301 (Version 1)
Quarter: 2025Q2

REPORT INFORMATION
  Report Type: Spontaneous
  Country: CN (occurrence: CN)
  Receive Date: 20250421
  Receipt Date: 20250421
  Transmission Date: 20250717
  Serious: Yes (Hospitalization)
  Sender: MYLAN
  Company Number: CN-MYLANLABS-2025M1032712

PATIENT
  Age: 53 Year
  Sex: Female

DRUGS (32)
  1. METFORMIN [Suspect]
     Active Substance: METFORMIN HYDROCHLORIDE
     Indication: Type 2 diabetes mellitus
     Dosage: 0.5 GRAM, BID
     Dates: start: 2020, end: 202010
  2. METFORMIN [Suspect]
     Active Substance: METFORMIN HYDROCHLORIDE
     Dosage: 0.5 GRAM, BID
     Dates: start: 2020, end: 202010
  3. METFORMIN [Suspect]
     Active Substance: METFORMIN HYDROCHLORIDE
     Dosage: 0.5 GRAM, BID
     Route: 048
     Dates: start: 2020, end: 202010
  4. METFORMIN [Suspect]
     Active Substance: METFORMIN HYDROCHLORIDE
     Dosage: 0.5 GRAM, BID
     Route: 048
     Dates: start: 2020, end: 202010
  5. METFORMIN [Suspect]
     Active Substance: METFORMIN HYDROCHLORIDE
     Dosage: 0.5 GRAM, TID
     Dates: start: 20211125
  6. METFORMIN [Suspect]
     Active Substance: METFORMIN HYDROCHLORIDE
     Dosage: 0.5 GRAM, TID
     Dates: start: 20211125
  7. METFORMIN [Suspect]
     Active Substance: METFORMIN HYDROCHLORIDE
     Dosage: 0.5 GRAM, TID
     Route: 048
     Dates: start: 20211125
  8. METFORMIN [Suspect]
     Active Substance: METFORMIN HYDROCHLORIDE
     Dosage: 0.5 GRAM, TID
     Route: 048
     Dates: start: 20211125
  9. ACARBOSE [Suspect]
     Active Substance: ACARBOSE
     Indication: Type 2 diabetes mellitus
     Dosage: 50 MILLIGRAM, TID
     Dates: start: 20211125
  10. ACARBOSE [Suspect]
     Active Substance: ACARBOSE
     Dosage: 50 MILLIGRAM, TID
     Route: 048
     Dates: start: 20211125
  11. ACARBOSE [Suspect]
     Active Substance: ACARBOSE
     Dosage: 50 MILLIGRAM, TID
     Route: 048
     Dates: start: 20211125
  12. ACARBOSE [Suspect]
     Active Substance: ACARBOSE
     Dosage: 50 MILLIGRAM, TID
     Dates: start: 20211125
  13. GLIMEPIRIDE [Suspect]
     Active Substance: GLIMEPIRIDE
     Indication: Type 2 diabetes mellitus
     Dosage: 2 MILLIGRAM, QD
     Dates: start: 20211125
  14. GLIMEPIRIDE [Suspect]
     Active Substance: GLIMEPIRIDE
     Dosage: 2 MILLIGRAM, QD
     Route: 048
     Dates: start: 20211125
  15. GLIMEPIRIDE [Suspect]
     Active Substance: GLIMEPIRIDE
     Dosage: 2 MILLIGRAM, QD
     Route: 048
     Dates: start: 20211125
  16. GLIMEPIRIDE [Suspect]
     Active Substance: GLIMEPIRIDE
     Dosage: 2 MILLIGRAM, QD
     Dates: start: 20211125
  17. INSULIN ASPART [Suspect]
     Active Substance: INSULIN ASPART
     Indication: Type 2 diabetes mellitus
  18. INSULIN ASPART [Suspect]
     Active Substance: INSULIN ASPART
  19. INSULIN ASPART [Suspect]
     Active Substance: INSULIN ASPART
     Route: 058
  20. INSULIN ASPART [Suspect]
     Active Substance: INSULIN ASPART
     Route: 058
  21. INSULIN ASPART [Suspect]
     Active Substance: INSULIN ASPART
  22. INSULIN ASPART [Suspect]
     Active Substance: INSULIN ASPART
  23. INSULIN ASPART [Suspect]
     Active Substance: INSULIN ASPART
     Route: 058
  24. INSULIN ASPART [Suspect]
     Active Substance: INSULIN ASPART
     Route: 058
  25. INSULIN ASPART [Suspect]
     Active Substance: INSULIN ASPART
  26. INSULIN ASPART [Suspect]
     Active Substance: INSULIN ASPART
     Route: 058
  27. INSULIN ASPART [Suspect]
     Active Substance: INSULIN ASPART
  28. INSULIN ASPART [Suspect]
     Active Substance: INSULIN ASPART
     Route: 058
  29. INSULIN DETEMIR [Suspect]
     Active Substance: INSULIN DETEMIR
     Indication: Type 2 diabetes mellitus
     Dosage: UNK, HS {28U) BEFORE BEDTIME}
  30. INSULIN DETEMIR [Suspect]
     Active Substance: INSULIN DETEMIR
     Dosage: UNK, HS {28U) BEFORE BEDTIME}
     Route: 058
  31. INSULIN DETEMIR [Suspect]
     Active Substance: INSULIN DETEMIR
     Dosage: UNK, HS {28U) BEFORE BEDTIME}
     Route: 058
  32. INSULIN DETEMIR [Suspect]
     Active Substance: INSULIN DETEMIR
     Dosage: UNK, HS {28U) BEFORE BEDTIME}

REACTIONS (2)
  - Drug ineffective [Unknown]
  - Maternal exposure during pregnancy [Recovered/Resolved]

NARRATIVE: CASE EVENT DATE: 20210101
